FAERS Safety Report 9563195 (Version 1)
Quarter: 2013Q3

REPORT INFORMATION
  Report Type: Spontaneous
  Country: PR (occurrence: PR)
  Receive Date: 20130927
  Receipt Date: 20130927
  Transmission Date: 20140515
  Serious: No
  Sender: FDA-Public Use
  Company Number: PR-BRISTOL-MYERS SQUIBB COMPANY-18924811

PATIENT
  Age: 84 Year
  Sex: Female

DRUGS (1)
  1. ONGLYZA TABS 5 MG [Suspect]

REACTIONS (2)
  - Face oedema [Unknown]
  - Oedema peripheral [Unknown]
